FAERS Safety Report 18671428 (Version 19)
Quarter: 2025Q1

REPORT INFORMATION
  Report Type: Report from Study
  Country: US (occurrence: US)
  Receive Date: 20201228
  Receipt Date: 20250212
  Transmission Date: 20250409
  Serious: Yes (Hospitalization, Other)
  Sender: TAKEDA
  Company Number: US-TAKEDA-US202008057

PATIENT
  Age: 55 Year
  Sex: Female
  Weight: 77 kg

DRUGS (25)
  1. HUMAN IMMUNOGLOBULIN G [Suspect]
     Active Substance: HUMAN IMMUNOGLOBULIN G
     Indication: Selective IgG subclass deficiency
     Dosage: 24 GRAM, Q2WEEKS
     Dates: start: 20180727
  2. HUMAN IMMUNOGLOBULIN G [Suspect]
     Active Substance: HUMAN IMMUNOGLOBULIN G
     Indication: Primary immunodeficiency syndrome
     Dosage: 24 GRAM, Q2WEEKS
     Dates: start: 20180824
  3. HUMAN IMMUNOGLOBULIN G [Suspect]
     Active Substance: HUMAN IMMUNOGLOBULIN G
     Indication: Immunodeficiency common variable
     Dosage: UNK UNK, Q2WEEKS
  4. HUMAN IMMUNOGLOBULIN G [Suspect]
     Active Substance: HUMAN IMMUNOGLOBULIN G
     Dosage: 24 GRAM, 2/WEEK
  5. ACETAMINOPHEN [Concomitant]
     Active Substance: ACETAMINOPHEN
  6. EPINEPHRINE [Concomitant]
     Active Substance: EPINEPHRINE
  7. PLAQUENIL [Concomitant]
     Active Substance: HYDROXYCHLOROQUINE SULFATE
  8. SYNTHROID [Concomitant]
     Active Substance: LEVOTHYROXINE SODIUM
  9. FLUOXETINE HYDROCHLORIDE [Concomitant]
     Active Substance: FLUOXETINE HYDROCHLORIDE
  10. MAGNESIUM [Concomitant]
     Active Substance: MAGNESIUM
  11. PANTOPRAZOLE SODIUM [Concomitant]
     Active Substance: PANTOPRAZOLE SODIUM
  12. EVOXAC [Concomitant]
     Active Substance: CEVIMELINE HYDROCHLORIDE
  13. ALBUTEROL SULFATE [Concomitant]
     Active Substance: ALBUTEROL SULFATE
  14. CALCIUM\CHOLECALCIFEROL [Concomitant]
     Active Substance: CALCIUM\CHOLECALCIFEROL
  15. AMITRIPTYLINE HYDROCHLORIDE [Concomitant]
     Active Substance: AMITRIPTYLINE HYDROCHLORIDE
  16. LIDOCAINE\PRILOCAINE [Concomitant]
     Active Substance: LIDOCAINE\PRILOCAINE
  17. ELMIRON [Concomitant]
     Active Substance: PENTOSAN POLYSULFATE SODIUM
  18. SILODOSIN [Concomitant]
     Active Substance: SILODOSIN
  19. VITAMIN B [Concomitant]
     Active Substance: VITAMIN B
  20. TOPAMAX [Concomitant]
     Active Substance: TOPIRAMATE
  21. DIPHENHYDRAMINE HYDROCHLORIDE [Concomitant]
     Active Substance: DIPHENHYDRAMINE HYDROCHLORIDE
  22. CARAFATE [Concomitant]
     Active Substance: SUCRALFATE
  23. TRULANCE [Concomitant]
     Active Substance: PLECANATIDE
  24. ZYRTEC [Concomitant]
     Active Substance: CETIRIZINE HYDROCHLORIDE
  25. SUBOXONE [Concomitant]
     Active Substance: BUPRENORPHINE HYDROCHLORIDE\NALOXONE HYDROCHLORIDE

REACTIONS (22)
  - Inflammation [Recovered/Resolved]
  - Illness [Recovered/Resolved]
  - Heteronymous diplopia [Unknown]
  - Pneumonia [Recovering/Resolving]
  - Spinal compression fracture [Unknown]
  - Hernia [Unknown]
  - Cellulitis [Unknown]
  - Infusion site pruritus [Unknown]
  - Fatigue [Unknown]
  - Weight decreased [Unknown]
  - Incorrect drug administration rate [Unknown]
  - Product use issue [Unknown]
  - Insurance issue [Unknown]
  - Headache [Unknown]
  - COVID-19 [Recovering/Resolving]
  - Osteoarthritis [Unknown]
  - Suspected COVID-19 [Unknown]
  - Bone contusion [Recovering/Resolving]
  - Epistaxis [Not Recovered/Not Resolved]
  - Heart rate increased [Unknown]
  - Rash [Unknown]
  - Dizziness [Unknown]

NARRATIVE: CASE EVENT DATE: 20210602
